FAERS Safety Report 20308985 (Version 1)
Quarter: 2022Q1

REPORT INFORMATION
  Report Type: Spontaneous
  Country: US (occurrence: None)
  Receive Date: 20220106
  Receipt Date: 20220106
  Transmission Date: 20220423
  Serious: No
  Sender: FDA-Public Use
  Company Number: None

PATIENT
  Sex: Male
  Weight: 63.5 kg

DRUGS (7)
  1. ERIVEDGE [Suspect]
     Active Substance: VISMODEGIB
     Indication: Basal cell carcinoma
     Dosage: 150MG QD ORAL?
     Route: 048
  2. BETADINE [Concomitant]
     Active Substance: POVIDONE-IODINE
  3. FLUOROURACIL [Concomitant]
     Active Substance: FLUOROURACIL
  4. FUROSEMIDE [Concomitant]
     Active Substance: FUROSEMIDE
  5. LOSARTAN [Concomitant]
     Active Substance: LOSARTAN
  6. LOVASTATIN [Concomitant]
     Active Substance: LOVASTATIN
  7. PROSTAT [Concomitant]

REACTIONS (1)
  - Diarrhoea [None]
